FAERS Safety Report 12795714 (Version 2)
Quarter: 2017Q2

REPORT INFORMATION
  Report Type: Spontaneous
  Country: US (occurrence: US)
  Receive Date: 20160929
  Receipt Date: 20170403
  Transmission Date: 20170830
  Serious: Yes (Other)
  Sender: FDA-Public Use
  Company Number: US-TEVA-697023USA

PATIENT
  Age: 37 Year
  Sex: Female

DRUGS (9)
  1. NARATRIPTAN [Concomitant]
     Active Substance: NARATRIPTAN HYDROCHLORIDE
     Route: 065
  2. VASCEPA [Concomitant]
     Active Substance: ICOSAPENT ETHYL
     Route: 065
  3. VITAMIN E [Concomitant]
     Active Substance: .ALPHA.-TOCOPHEROL
     Route: 065
  4. COPAXONE [Suspect]
     Active Substance: GLATIRAMER ACETATE
     Indication: MULTIPLE SCLEROSIS
     Route: 058
     Dates: start: 20141112
  5. MULTIVITAMINS [Concomitant]
     Active Substance: VITAMINS
     Route: 065
  6. NALTREXONE [Concomitant]
     Active Substance: NALTREXONE
     Route: 065
  7. TURMERIC [Concomitant]
     Active Substance: HERBALS\TURMERIC
     Route: 065
  8. CALCIUM [Concomitant]
     Active Substance: CALCIUM
     Route: 065
  9. VITAMIN D [Concomitant]
     Active Substance: CHOLECALCIFEROL
     Route: 065

REACTIONS (2)
  - Multiple sclerosis relapse [Unknown]
  - Injection site reaction [Unknown]

NARRATIVE: CASE EVENT DATE: 201609
